FAERS Safety Report 12677819 (Version 1)
Quarter: 2016Q3

REPORT INFORMATION
  Report Type: Spontaneous
  Country: CH (occurrence: CH)
  Receive Date: 20160823
  Receipt Date: 20160823
  Transmission Date: 20161109
  Serious: Yes (Hospitalization)
  Sender: FDA-Public Use
  Company Number: CH-PFIZER INC-2016397101

PATIENT
  Age: 71 Year
  Sex: Female
  Weight: 50 kg

DRUGS (1)
  1. METHOTREXATE PFIZER [Suspect]
     Active Substance: METHOTREXATE
     Dosage: 20 MG ON A DAILY BASIS FOR 4 OR 11 DAYS

REACTIONS (5)
  - Ulcer [Unknown]
  - Pain [Unknown]
  - Overdose [Unknown]
  - Inappropriate schedule of drug administration [Unknown]
  - Product preparation error [Unknown]
